FAERS Safety Report 18532372 (Version 2)
Quarter: 2020Q4

REPORT INFORMATION
  Report Type: Spontaneous
  Country: RU (occurrence: RU)
  Receive Date: 20201123
  Receipt Date: 20201208
  Transmission Date: 20210114
  Serious: No
  Sender: FDA-Public Use
  Company Number: RU-LUPIN PHARMACEUTICALS INC.-2020-08682

PATIENT
  Sex: Male

DRUGS (2)
  1. DOXYCYCLINE. [Suspect]
     Active Substance: DOXYCYCLINE
     Indication: URETHRITIS
     Dosage: 100 MILLIGRAM, BID (SCHEDULED FOR 7 DAYS)
     Route: 065
  2. CLINDAMYCIN. [Suspect]
     Active Substance: CLINDAMYCIN
     Indication: URETHRITIS
     Dosage: 300 MILLIGRAM, BID (SCHEDULED FOR 7 DAYS)
     Route: 065

REACTIONS (1)
  - Headache [Unknown]
